FAERS Safety Report 9602087 (Version 2)
Quarter: 2013Q4

REPORT INFORMATION
  Report Type: Spontaneous
  Country: US (occurrence: US)
  Receive Date: 20131007
  Receipt Date: 20131007
  Transmission Date: 20140711
  Serious: No
  Sender: FDA-Public Use
  Company Number: US-BRISTOL-MYERS SQUIBB COMPANY-19042928

PATIENT
  Age: 57 Year
  Sex: Male
  Weight: 95.9 kg

DRUGS (12)
  1. NULOJIX [Suspect]
     Indication: RENAL TRANSPLANT
     Route: 042
     Dates: start: 201305
  2. GLIPIZIDE [Concomitant]
  3. AMLODIPINE [Concomitant]
  4. CLONIDINE [Concomitant]
  5. CARVEDILOL [Concomitant]
  6. FUROSEMIDE [Concomitant]
  7. ASPIRIN [Concomitant]
  8. PAXIL [Concomitant]
  9. PHOSLO [Concomitant]
     Dosage: 1DF:1 UNITS NOS.
  10. VITAMIN D [Concomitant]
     Dosage: 1DF:6000 UNITS
  11. NORCO [Concomitant]
     Dosage: 1DF: 10/325 AS NECESSORY.
  12. HECTOROL [Concomitant]
     Indication: HAEMODIALYSIS
     Route: 042

REACTIONS (1)
  - Kidney transplant rejection [Unknown]
